FAERS Safety Report 7438796-7 (Version None)
Quarter: 2011Q2

REPORT INFORMATION
  Report Type: 
  Country: None (occurrence: None)
  Receive Date: 20110426
  Receipt Date: 20110412
  Transmission Date: 20111010
  Serious: Yes (Hospitalization)
  Sender: FDA-Public Use
  Company Number: FR-GENENTECH-282741

PATIENT
  Sex: Female

DRUGS (15)
  1. ATARAX [Concomitant]
     Indication: PRODUCT USED FOR UNKNOWN INDICATION
  2. ENDOXAN [Suspect]
     Dosage: 250 MG/M2, UNK
     Route: 002
     Dates: start: 20081231, end: 20090102
  3. ZELITREX [Concomitant]
     Indication: PRODUCT USED FOR UNKNOWN INDICATION
  4. TIENAM [Concomitant]
     Indication: PRODUCT USED FOR UNKNOWN INDICATION
     Dosage: UNK
     Dates: start: 20081106, end: 20081118
  5. FLUDARA [Suspect]
     Dosage: 70 MG, UNK
     Route: 002
     Dates: start: 20081003, end: 20081005
  6. PENTACARINAT [Concomitant]
     Indication: PRODUCT USED FOR UNKNOWN INDICATION
     Dosage: UNK
     Dates: start: 20081117, end: 20081117
  7. ENDOXAN [Suspect]
     Dosage: 450 MG, UNK
     Route: 002
     Dates: start: 20081003, end: 20081005
  8. FLUDARA [Suspect]
     Indication: CHRONIC LYMPHOCYTIC LEUKAEMIA
     Dosage: 70 MG, QD
     Route: 002
     Dates: start: 20080902, end: 20081003
  9. RITUXIMAB [Suspect]
     Indication: CHRONIC LYMPHOCYTIC LEUKAEMIA
     Dosage: 920 MG, QD
     Route: 041
     Dates: start: 20080901, end: 20081016
  10. BACTRIM [Concomitant]
     Indication: PRODUCT USED FOR UNKNOWN INDICATION
  11. RITUXIMAB [Suspect]
     Dosage: 375 MG/M2, UNK
     Dates: start: 20081231, end: 20081231
  12. ENDOXAN [Suspect]
     Indication: NEOPLASM MALIGNANT
     Dosage: 450 MG, QD
     Route: 002
     Dates: start: 20080902, end: 20081003
  13. KENZEN [Concomitant]
     Indication: PRODUCT USED FOR UNKNOWN INDICATION
  14. RITUXIMAB [Suspect]
     Dosage: 920 MG, UNK
     Dates: start: 20081016, end: 20081016
  15. FLUDARA [Suspect]
     Dosage: 40 MG/M2, UNK
     Route: 002
     Dates: start: 20081231, end: 20090102

REACTIONS (4)
  - PYREXIA [None]
  - FEBRILE BONE MARROW APLASIA [None]
  - ANAEMIA [None]
  - CYTOMEGALOVIRUS TEST POSITIVE [None]
